FAERS Safety Report 17471137 (Version 1)
Quarter: 2020Q1

REPORT INFORMATION
  Report Type: Spontaneous
  Country: TH (occurrence: TH)
  Receive Date: 20200228
  Receipt Date: 20200228
  Transmission Date: 20200409
  Serious: Yes (Other)
  Sender: FDA-Public Use
  Company Number: TH-ROCHE-2558090

PATIENT
  Sex: Female

DRUGS (13)
  1. METHOTREXATE. [Suspect]
     Active Substance: METHOTREXATE
     Indication: PROPHYLAXIS
     Dosage: HIGH DOSE-METHOTREXATE (HD-MTX) X 2 CYCLES
     Route: 065
  2. CARBOPLATIN. [Suspect]
     Active Substance: CARBOPLATIN
     Indication: DIFFUSE LARGE B-CELL LYMPHOMA
     Dosage: PART OF ICE X 3 CYCLES
     Route: 065
     Dates: start: 20190828, end: 20191028
  3. ETOPOSIDE. [Suspect]
     Active Substance: ETOPOSIDE
     Indication: DIFFUSE LARGE B-CELL LYMPHOMA
     Dosage: PART OF ICE X 3 CYCLES
     Route: 065
     Dates: start: 20190828, end: 20191028
  4. MABTHERA [Suspect]
     Active Substance: RITUXIMAB
     Indication: DIFFUSE LARGE B-CELL LYMPHOMA
     Dosage: PART OF R-CHOP X 8 CYCLES
     Route: 042
     Dates: start: 20181102, end: 20190411
  5. VINCRISTINE [Suspect]
     Active Substance: VINCRISTINE
     Indication: DIFFUSE LARGE B-CELL LYMPHOMA
     Dosage: PART OF R-CHOP X 8 CYCLES
     Route: 065
     Dates: start: 20181102, end: 20190411
  6. IFOSFAMIDE. [Suspect]
     Active Substance: IFOSFAMIDE
     Indication: DIFFUSE LARGE B-CELL LYMPHOMA
     Dosage: PART OF ICE X 3 CYCLES
     Route: 065
     Dates: start: 20190828, end: 20191028
  7. CISPLATIN. [Suspect]
     Active Substance: CISPLATIN
     Indication: DIFFUSE LARGE B-CELL LYMPHOMA
     Dosage: PART OF ESHAP X 3 CYCLES
     Route: 065
     Dates: start: 20191128, end: 20200107
  8. CYCLOPHOSPHAMIDE. [Suspect]
     Active Substance: CYCLOPHOSPHAMIDE
     Indication: DIFFUSE LARGE B-CELL LYMPHOMA
     Dosage: PART OF R-CHOP X 8 CYCLES
     Route: 065
     Dates: start: 20181102, end: 20190411
  9. PREDNISOLONE. [Suspect]
     Active Substance: PREDNISOLONE
     Indication: DIFFUSE LARGE B-CELL LYMPHOMA
     Dosage: PART OF R-CHOP X 8 CYCLES
     Route: 065
     Dates: start: 20181102, end: 20190411
  10. DOXORUBICIN [Suspect]
     Active Substance: DOXORUBICIN
     Indication: DIFFUSE LARGE B-CELL LYMPHOMA
     Dosage: PART OF R-CHOP X 8 CYCLES
     Route: 065
     Dates: start: 20181102, end: 20190411
  11. ETOPOSIDE. [Suspect]
     Active Substance: ETOPOSIDE
     Dosage: PART OF ESHAP X 3 CYCLES
     Route: 065
     Dates: start: 20191128, end: 20200107
  12. METHYLPREDNISOLONE. [Suspect]
     Active Substance: METHYLPREDNISOLONE
     Indication: DIFFUSE LARGE B-CELL LYMPHOMA
     Dosage: PART OF ESHAP X 3 CYCLES
     Route: 065
     Dates: start: 20191128, end: 20200107
  13. CYTARABINE. [Suspect]
     Active Substance: CYTARABINE
     Indication: DIFFUSE LARGE B-CELL LYMPHOMA
     Dosage: PART OF ESHAP X 3 CYCLES
     Route: 065
     Dates: start: 20191128, end: 20200107

REACTIONS (1)
  - Diffuse large B-cell lymphoma refractory [Unknown]
